FAERS Safety Report 19453737 (Version 1)
Quarter: 2021Q2

REPORT INFORMATION
  Report Type: Spontaneous
  Country: GB (occurrence: GB)
  Receive Date: 20210623
  Receipt Date: 20210623
  Transmission Date: 20210717
  Serious: Yes (Other)
  Sender: FDA-Public Use
  Company Number: GB-DEXPHARM-20210899

PATIENT
  Sex: Female

DRUGS (2)
  1. OMEPRAZOLE LICONSA [Suspect]
     Active Substance: OMEPRAZOLE
     Indication: PRODUCT USED FOR UNKNOWN INDICATION
     Dosage: OMEPRAZOLE LABORATORIOS LICONSA S.A. 20 MG UNKNOWN
  2. THIAMINE HYDROCHLORIDE. [Interacting]
     Active Substance: THIAMINE HYDROCHLORIDE
     Indication: PRODUCT USED FOR UNKNOWN INDICATION
     Dosage: THIAMINE 50MG UNKNOWN

REACTIONS (4)
  - Extra dose administered [Unknown]
  - Drug interaction [Unknown]
  - Product dispensing error [Unknown]
  - Malaise [Unknown]
